FAERS Safety Report 6923271-6 (Version None)
Quarter: 2010Q3

REPORT INFORMATION
  Report Type: 
  Country: None (occurrence: None)
  Receive Date: 20100813
  Receipt Date: 20100806
  Transmission Date: 20110219
  Serious: Yes (Hospitalization)
  Sender: FDA-Public Use
  Company Number: DK-SANOFI-AVENTIS-2010SA029099

PATIENT
  Age: 53 Year
  Sex: Male

DRUGS (7)
  1. LANTUS [Suspect]
     Indication: DIABETES MELLITUS
     Dosage: 100 INTERNATIONAL UNIT(S)/ML
     Route: 058
     Dates: start: 20050718, end: 20100315
  2. SOLOSTAR [Suspect]
     Dates: start: 20050718, end: 20100315
  3. SIMVASTATIN [Concomitant]
  4. AMLODIPINE [Concomitant]
  5. CORODIL [Concomitant]
     Route: 048
  6. INSULATARD [Concomitant]
  7. INSULIN HUMAN [Concomitant]
     Dosage: 16-8-16 IU
     Route: 058

REACTIONS (1)
  - RENAL CANCER [None]
